FAERS Safety Report 23968212 (Version 1)
Quarter: 2024Q2

REPORT INFORMATION
  Report Type: Spontaneous
  Country: US (occurrence: None)
  Receive Date: 20240612
  Receipt Date: 20240612
  Transmission Date: 20240716
  Serious: Yes (Other)
  Sender: FDA-Public Use
  Company Number: None

PATIENT
  Age: 31 Year
  Sex: Female

DRUGS (9)
  1. MENOPUR [Suspect]
     Active Substance: FOLLITROPIN\LUTEINIZING HORMONE
     Indication: Oocyte harvest
     Dosage: FREQUENCY : DAILY;?? INJECT 150 UNITS UNDER THE SKIN (SUBCUTANEOUS INJECTION) DAILY?
     Route: 058
     Dates: start: 20240611
  2. ALLEGRA ALRG [Concomitant]
  3. FOLLISTI M AO [Concomitant]
  4. LO-ZUMANDIMI [Concomitant]
  5. MAGNESIUM [Concomitant]
     Active Substance: MAGNESIUM
  6. IMENQPUR [Concomitant]
  7. MULTI VITAMI [Concomitant]
  8. NOVAREL [Concomitant]
     Active Substance: CHORIOGONADOTROPIN ALFA
  9. VITAMIN D3 [Concomitant]
     Active Substance: CHOLECALCIFEROL

REACTIONS (1)
  - Breast cancer [None]

NARRATIVE: CASE EVENT DATE: 20240529
